FAERS Safety Report 4606899-8 (Version None)
Quarter: 2005Q1

REPORT INFORMATION
  Report Type: 
  Country: None (occurrence: None)
  Receive Date: 20050310
  Receipt Date: 20050217
  Transmission Date: 20050727
  Serious: Yes (Other)
  Sender: FDA-Public Use
  Company Number: TRP_0071_2005

PATIENT
  Age: 46 Year
  Sex: Male
  Weight: 75.7507 kg

DRUGS (5)
  1. RIBASPHERE [Suspect]
     Indication: HEPATITIS C
     Dosage: 600 MG QDAY PO
     Route: 048
     Dates: start: 20040816, end: 20040101
  2. RIBASPHERE 200MG [Suspect]
     Indication: HEPATITIS C
     Dosage: 800 MG QDAY PO
     Route: 048
     Dates: start: 20040101, end: 20041101
  3. RIBASPHERE [Suspect]
     Indication: HEPATITIS C
     Dosage: 600 MG QDAY PO
     Route: 048
     Dates: start: 20050121
  4. PEG-INTRON [Suspect]
     Indication: HEPATITIS C
     Dosage: 0.5 DF QDAY SC
     Route: 058
     Dates: start: 20040816, end: 20041101
  5. PEG-INTRON [Suspect]
     Indication: HEPATITIS C
     Dosage: 0.3 DF QDAY SC
     Route: 058
     Dates: start: 20050121

REACTIONS (1)
  - TRANSIENT ISCHAEMIC ATTACK [None]
